FAERS Safety Report 4290292-4 (Version None)
Quarter: 2004Q1

REPORT INFORMATION
  Report Type: 
  Country: None (occurrence: None)
  Receive Date: 20040209
  Receipt Date: 20040128
  Transmission Date: 20041129
  Serious: Yes (Other)
  Sender: FDA-Public Use
  Company Number: HQWYE654329JAN04

PATIENT
  Age: 12 Year
  Sex: Female

DRUGS (3)
  1. PROTONIX [Suspect]
     Indication: VARICES OESOPHAGEAL
     Dosage: 40 MG (FREQUENCY UNSPECIFIED), ORAL
     Route: 048
     Dates: start: 20031128, end: 20040124
  2. CAPTOPRIL [Concomitant]
  3. PHYTONADIONE [Concomitant]

REACTIONS (5)
  - ANTIBODY TEST ABNORMAL [None]
  - BLOOD THYROID STIMULATING HORMONE INCREASED [None]
  - HYPOTHYROIDISM [None]
  - THYROXINE INCREASED [None]
  - TRI-IODOTHYRONINE INCREASED [None]
